FAERS Safety Report 14199284 (Version 2)
Quarter: 2017Q4

REPORT INFORMATION
  Report Type: Spontaneous
  Country: RU (occurrence: RU)
  Receive Date: 20171117
  Receipt Date: 20171227
  Transmission Date: 20180321
  Serious: Yes (Hospitalization, Other)
  Sender: FDA-Public Use
  Company Number: RU-ASTRAZENECA-2017SF15830

PATIENT
  Age: 48 Year
  Sex: Male
  Weight: 98 kg

DRUGS (4)
  1. VEROSPIRON [Concomitant]
     Active Substance: SPIRONOLACTONE
  2. AMLODIPINE [Concomitant]
     Active Substance: AMLODIPINE BESYLATE
  3. BRILINTA [Suspect]
     Active Substance: TICAGRELOR
     Indication: MYOCARDIAL INFARCTION
     Route: 048
     Dates: start: 201607
  4. CARDIOMAGNYL [Concomitant]
     Active Substance: ASPIRIN\MAGNESIUM HYDROXIDE

REACTIONS (5)
  - Acute coronary syndrome [Recovered/Resolved]
  - Vascular stent occlusion [Recovered/Resolved]
  - Off label use [Recovered/Resolved]
  - Contusion [Not Recovered/Not Resolved]
  - Product use issue [Recovered/Resolved]

NARRATIVE: CASE EVENT DATE: 201607
